FAERS Safety Report 15959920 (Version 1)
Quarter: 2019Q1

REPORT INFORMATION
  Report Type: Spontaneous
  Country: RU (occurrence: RU)
  Receive Date: 20190214
  Receipt Date: 20190214
  Transmission Date: 20190417
  Serious: Yes (Other)
  Sender: FDA-Public Use
  Company Number: RU-SA-2019SA035386

PATIENT
  Age: 60 Year
  Sex: Male

DRUGS (15)
  1. RITUXIMAB. [Concomitant]
     Active Substance: RITUXIMAB
     Indication: CHEMOTHERAPY
     Route: 065
  2. VINCRISTINE [VINCRISTINE SULFATE] [Concomitant]
     Indication: CHEMOTHERAPY
     Route: 065
  3. CYCLOPHOSPHAMIDE. [Concomitant]
     Active Substance: CYCLOPHOSPHAMIDE
     Indication: CHEMOTHERAPY
     Route: 065
  4. LEMTRADA [Suspect]
     Active Substance: ALEMTUZUMAB
     Dosage: 100 MG
     Route: 041
  5. GAZYVA [Concomitant]
     Active Substance: OBINUTUZUMAB
     Indication: CHEMOTHERAPY
     Route: 065
  6. LEFLUNOMIDE. [Suspect]
     Active Substance: LEFLUNOMIDE
     Dosage: 100 MG
     Route: 048
  7. CYCLOSPORIN [Concomitant]
     Active Substance: CYCLOSPORINE
     Indication: NEPHROPATHY
  8. LEMTRADA [Suspect]
     Active Substance: ALEMTUZUMAB
     Indication: NEPHROPATHY
     Dosage: 3.2 MG/KG/30 MG / 40 MG
     Route: 041
  9. LEFLUNOMIDE. [Suspect]
     Active Substance: LEFLUNOMIDE
     Indication: NEPHROPATHY
     Dosage: 30MG/40 MG3.2 MG/KG
     Route: 048
  10. BUSULFAN. [Suspect]
     Active Substance: BUSULFAN
     Dosage: 100 MG
     Route: 065
  11. RECTODELT [Concomitant]
     Active Substance: PREDNISONE
     Indication: NEPHROPATHY
     Route: 065
  12. BENDAMUSTINE [Concomitant]
     Active Substance: BENDAMUSTINE
     Indication: CHEMOTHERAPY
     Route: 065
  13. GANCICLOVIR. [Concomitant]
     Active Substance: GANCICLOVIR
     Indication: CHEMOTHERAPY
     Route: 065
  14. BUSULFAN. [Suspect]
     Active Substance: BUSULFAN
     Indication: NEPHROPATHY
     Dosage: 3.2 MG/KG/30MG/40 MG
     Route: 065
  15. DOXORUBICIN [Concomitant]
     Active Substance: DOXORUBICIN
     Route: 065

REACTIONS (3)
  - Drug ineffective [Unknown]
  - Renal failure [Unknown]
  - Product use issue [Unknown]
